FAERS Safety Report 5211714-8 (Version None)
Quarter: 2007Q1

REPORT INFORMATION
  Report Type: 
  Country: None (occurrence: None)
  Receive Date: 20070118
  Receipt Date: 20070110
  Transmission Date: 20070707
  Serious: Yes (Disabling, Other)
  Sender: FDA-Public Use
  Company Number: 2005UW11412

PATIENT
  Age: 22 Year
  Sex: Male
  Weight: 57.6 kg

DRUGS (3)
  1. ZOMIG [Suspect]
     Indication: MIGRAINE WITHOUT AURA
     Route: 048
  2. ZOMIG [Suspect]
     Route: 048
  3. IBUPROFEN [Concomitant]

REACTIONS (6)
  - DYSPNOEA [None]
  - HEART RATE INCREASED [None]
  - HYPERHIDROSIS [None]
  - HYPOAESTHESIA [None]
  - INAPPROPRIATE SCHEDULE OF DRUG ADMINISTRATION [None]
  - PARAESTHESIA [None]
